FAERS Safety Report 17164451 (Version 1)
Quarter: 2019Q4

REPORT INFORMATION
  Report Type: Spontaneous
  Country: IT (occurrence: IT)
  Receive Date: 20191217
  Receipt Date: 20191217
  Transmission Date: 20200122
  Serious: Yes (Death, Life-Threatening)
  Sender: FDA-Public Use
  Company Number: IT-MYLANLABS-2019M1123141

PATIENT
  Age: 80 Year
  Sex: Female
  Weight: 40 kg

DRUGS (4)
  1. VALPROIC ACID. [Concomitant]
     Active Substance: VALPROIC ACID
     Indication: PARTIAL SEIZURES
     Dosage: 1000 MILLIGRAM,QD(500 MG,2X/DAY(BID)
     Route: 048
     Dates: start: 20190622, end: 20190704
  2. VIMPAT [Suspect]
     Active Substance: LACOSAMIDE
     Indication: PARTIAL SEIZURES
     Dosage: 200 MILLIGRAM,QD (100 MG, 2X/DAY (BID))
     Route: 048
     Dates: start: 20190624, end: 20190704
  3. LEVETIRACETAM. [Suspect]
     Active Substance: LEVETIRACETAM
     Indication: PARTIAL SEIZURES
     Dosage: UNK
  4. NUBRIVEO [Suspect]
     Active Substance: BRIVARACETAM
     Indication: PARTIAL SEIZURES
     Dosage: 100 MILLIGRAM,QD;ONLY ONE DOSE RECEIVED
     Route: 042
     Dates: start: 20190625, end: 20190625

REACTIONS (2)
  - Acute respiratory failure [Fatal]
  - Off label use [Unknown]

NARRATIVE: CASE EVENT DATE: 20190625
